FAERS Safety Report 24613645 (Version 3)
Quarter: 2025Q1

REPORT INFORMATION
  Report Type: Spontaneous
  Country: GB (occurrence: GB)
  Receive Date: 20241113
  Receipt Date: 20250304
  Transmission Date: 20250409
  Serious: Yes (Other)
  Sender: TEVA
  Company Number: None

PATIENT
  Sex: Female

DRUGS (1)
  1. VENLAFAXINE [Suspect]
     Active Substance: VENLAFAXINE HYDROCHLORIDE
     Indication: Product used for unknown indication
     Route: 065

REACTIONS (4)
  - Salivary gland pain [Not Recovered/Not Resolved]
  - Temporomandibular pain and dysfunction syndrome [Not Recovered/Not Resolved]
  - Parotid gland enlargement [Unknown]
  - Pain in jaw [Not Recovered/Not Resolved]
